FAERS Safety Report 8231123-7 (Version None)
Quarter: 2012Q1

REPORT INFORMATION
  Report Type: 
  Country: None (occurrence: None)
  Receive Date: 20120322
  Receipt Date: 20120322
  Transmission Date: 20120608
  Serious: Yes (Other)
  Sender: FDA-Public Use
  Company Number: None

PATIENT
  Age: 38 Year
  Sex: Female
  Weight: 72.574 kg

DRUGS (1)
  1. LO/OVRAL-28 [Suspect]
     Indication: CONTRACEPTION
     Dosage: 28
     Dates: start: 20050101, end: 20120324

REACTIONS (10)
  - THINKING ABNORMAL [None]
  - BLOOD PRESSURE INCREASED [None]
  - CARDIAC FLUTTER [None]
  - ASTHMA [None]
  - PANIC ATTACK [None]
  - SPEECH DISORDER [None]
  - CHEST DISCOMFORT [None]
  - TREMOR [None]
  - BODY TEMPERATURE DECREASED [None]
  - SOMNOLENCE [None]
